FAERS Safety Report 9439283 (Version 2)
Quarter: 2013Q3

REPORT INFORMATION
  Report Type: Report from Study
  Country: HK (occurrence: HK)
  Receive Date: 20130804
  Receipt Date: 20130806
  Transmission Date: 20140515
  Serious: Yes (Hospitalization)
  Sender: FDA-Public Use
  Company Number: HK-ROCHE-1251458

PATIENT
  Age: 48 Year
  Sex: Female
  Weight: 77.8 kg

DRUGS (19)
  1. TRASTUZUMAB [Suspect]
     Indication: BREAST CANCER
     Dosage: DATE OF LAST DOSE PRIOR TO SAE 5/JUL/2013
     Route: 042
     Dates: start: 20130705
  2. DOCETAXEL [Suspect]
     Indication: BREAST CANCER
     Route: 042
     Dates: start: 20130705
  3. CARBOPLATIN [Suspect]
     Indication: BREAST CANCER
     Dosage: DATE OF LAST DOSE 5/JUL/2013
     Route: 042
     Dates: start: 20130705
  4. DIFFLAM ORAL RINSE [Concomitant]
     Route: 065
     Dates: start: 20130704, end: 20130704
  5. CHLORPHENIRAMINE MALEATE [Concomitant]
     Route: 065
     Dates: start: 20130704, end: 20130710
  6. CHLORPHENIRAMINE MALEATE [Concomitant]
     Route: 065
     Dates: start: 20130705, end: 20130705
  7. DEXAMETHASONE [Concomitant]
     Route: 065
     Dates: start: 20130704, end: 20130706
  8. DEXAMETHASONE SODIUM PHOSPHATE/NEOMYCIN SULFATE [Concomitant]
  9. PEPCIDINE [Concomitant]
     Route: 065
     Dates: start: 20130704, end: 20130706
  10. NEUPOGEN [Concomitant]
     Route: 065
     Dates: start: 20130707, end: 20130711
  11. GRANISETRON [Concomitant]
     Route: 005
     Dates: start: 20130705, end: 20130705
  12. METOCLOPRAMIDE HCL [Concomitant]
     Route: 065
     Dates: start: 20130704, end: 20130708
  13. PARACETAMOL [Concomitant]
     Route: 065
     Dates: start: 20130705, end: 20130705
  14. ZANTAC [Concomitant]
     Route: 065
     Dates: start: 20130707, end: 20130707
  15. TRAMADOL HCL [Concomitant]
     Route: 065
     Dates: start: 20130704, end: 20130710
  16. TRANEXAMIC ACID [Concomitant]
     Route: 065
     Dates: start: 20130719
  17. LORAZEPAM [Concomitant]
     Route: 065
     Dates: start: 20130719
  18. TRIACIN [Concomitant]
     Route: 065
     Dates: start: 20130719
  19. PERTUZUMAB [Suspect]
     Indication: BREAST CANCER
     Dosage: DATE OF LAST DOSE:5/JUL/2013
     Route: 042
     Dates: start: 20130705

REACTIONS (1)
  - Ileus [Recovered/Resolved]
